FAERS Safety Report 10418437 (Version 1)
Quarter: 2014Q3

REPORT INFORMATION
  Report Type: Spontaneous
  Country: US (occurrence: US)
  Receive Date: 20140829
  Receipt Date: 20140829
  Transmission Date: 20150326
  Serious: Yes (Hospitalization)
  Sender: FDA-Public Use
  Company Number: US-GILEAD-2014-0113359

PATIENT
  Age: 76 Year
  Sex: Female

DRUGS (11)
  1. DEXILANT [Concomitant]
     Active Substance: DEXLANSOPRAZOLE
  2. ASPIRIN                            /00002701/ [Concomitant]
     Active Substance: ASPIRIN
  3. METOPROLOL [Concomitant]
     Active Substance: METOPROLOL
  4. CYMBALTA [Concomitant]
     Active Substance: DULOXETINE HYDROCHLORIDE
  5. DETROL [Concomitant]
     Active Substance: TOLTERODINE TARTRATE
  6. LETAIRIS [Suspect]
     Active Substance: AMBRISENTAN
     Dosage: 5 MG, QD
     Route: 065
     Dates: start: 201408
  7. AMIODARONE [Concomitant]
     Active Substance: AMIODARONE
  8. COUMADIN [Concomitant]
     Active Substance: WARFARIN SODIUM
  9. LETAIRIS [Suspect]
     Active Substance: AMBRISENTAN
     Indication: COR PULMONALE CHRONIC
     Dosage: 5 MG, QD
     Route: 065
     Dates: start: 20130226, end: 201408
  10. PRAVASTATIN [Concomitant]
     Active Substance: PRAVASTATIN\PRAVASTATIN SODIUM
  11. LAMOTRIGINE. [Concomitant]
     Active Substance: LAMOTRIGINE

REACTIONS (1)
  - Arrhythmia [Recovered/Resolved]

NARRATIVE: CASE EVENT DATE: 20140808
